FAERS Safety Report 4773522-1 (Version None)
Quarter: 2005Q3

REPORT INFORMATION
  Report Type: 
  Country: None (occurrence: None)
  Receive Date: 20050920
  Receipt Date: 20050817
  Transmission Date: 20060218
  Serious: Yes (Life-Threatening, Hospitalization)
  Sender: FDA-Public Use
  Company Number: 2005UW12218

PATIENT
  Age: 56 Year
  Sex: Female
  Weight: 110 kg

DRUGS (31)
  1. SEROQUEL [Suspect]
     Indication: BIPOLAR I DISORDER
     Dosage: 300 MG TID, 1000 MG HS
     Route: 048
     Dates: end: 20050804
  2. SEROQUEL [Suspect]
     Indication: BIPOLAR DISORDER
     Dosage: 300 MG TID, 1000 MG HS
     Route: 048
     Dates: end: 20050804
  3. SEROQUEL [Suspect]
     Route: 048
     Dates: start: 20050818
  4. SEROQUEL [Suspect]
     Route: 048
     Dates: start: 20050818
  5. SEROQUEL [Suspect]
     Route: 048
     Dates: start: 20050822
  6. SEROQUEL [Suspect]
     Route: 048
     Dates: start: 20050822
  7. SEROQUEL [Suspect]
     Dosage: 300 MG AM, 200 MG PM, 400 MG HS
     Route: 048
     Dates: start: 20050824
  8. SEROQUEL [Suspect]
     Dosage: 300 MG AM, 200 MG PM, 400 MG HS
     Route: 048
     Dates: start: 20050824
  9. SEROQUEL [Suspect]
     Route: 048
     Dates: start: 20050831
  10. SEROQUEL [Suspect]
     Route: 048
     Dates: start: 20050831
  11. FENOFIBRATE [Suspect]
     Indication: BLOOD CHOLESTEROL INCREASED
     Dates: start: 20050724, end: 20050804
  12. FENOFIBRATE [Suspect]
     Indication: BLOOD TRIGLYCERIDES INCREASED
     Dates: start: 20050724, end: 20050804
  13. TOPAMAX [Concomitant]
     Indication: BIPOLAR I DISORDER
     Dosage: 25 MG AM, 125 MG HS
     Route: 048
     Dates: end: 20050804
  14. TOPAMAX [Concomitant]
     Indication: BIPOLAR DISORDER
     Dosage: 25 MG AM, 125 MG HS
     Route: 048
     Dates: end: 20050804
  15. CHLORPROMAZINE [Concomitant]
     Indication: BIPOLAR I DISORDER
     Dates: end: 20050804
  16. CHLORPROMAZINE [Concomitant]
     Indication: BIPOLAR DISORDER
     Dates: end: 20050804
  17. CLONAZEPAM [Concomitant]
     Indication: BIPOLAR I DISORDER
     Dates: end: 20050804
  18. CLONAZEPAM [Concomitant]
     Indication: BIPOLAR DISORDER
     Dates: end: 20050804
  19. CLONAZEPAM [Concomitant]
     Dates: start: 20050818, end: 20050819
  20. CLONAZEPAM [Concomitant]
     Dates: start: 20050818, end: 20050819
  21. CLONAZEPAM [Concomitant]
     Dates: start: 20050823
  22. CLONAZEPAM [Concomitant]
     Dates: start: 20050823
  23. CLONAZEPAM [Concomitant]
     Dosage: 1 MG AM, 2 MG HS
     Dates: start: 20050825
  24. CLONAZEPAM [Concomitant]
     Dosage: 1 MG AM, 2 MG HS
     Dates: start: 20050825
  25. ZOPICLONE [Concomitant]
     Route: 048
     Dates: end: 20050804
  26. ALENDRONATE [Concomitant]
     Dosage: EVERY WEDNESDAY
     Route: 048
     Dates: end: 20050804
  27. PANTOPRAZOLE [Concomitant]
     Route: 048
     Dates: end: 20050804
  28. SENOKOT [Concomitant]
     Route: 048
     Dates: end: 20050804
  29. SOFLAX [Concomitant]
     Route: 048
     Dates: end: 20050804
  30. CALCIUM WITH VITAMIN D [Concomitant]
     Dosage: CALCIUM 500 MG, VIT D 125 UNITS
     Route: 048
     Dates: end: 20050804
  31. VITAMIN D [Concomitant]
     Route: 048

REACTIONS (11)
  - ALANINE AMINOTRANSFERASE INCREASED [None]
  - ASPARTATE AMINOTRANSFERASE INCREASED [None]
  - BLOOD ALKALINE PHOSPHATASE INCREASED [None]
  - CARDIAC ARREST [None]
  - HEPATIC ENZYME INCREASED [None]
  - HYPERGLYCAEMIA [None]
  - HYPERKALAEMIA [None]
  - LIFE SUPPORT [None]
  - PANCREATITIS [None]
  - RENAL FAILURE [None]
  - VENTRICULAR EXTRASYSTOLES [None]
